FAERS Safety Report 6343661-2 (Version None)
Quarter: 2009Q3

REPORT INFORMATION
  Report Type: 
  Country: None (occurrence: None)
  Receive Date: 20090908
  Receipt Date: 20090831
  Transmission Date: 20100115
  Serious: Yes (Hospitalization)
  Sender: FDA-Public Use
  Company Number: B0591882A

PATIENT
  Sex: Male

DRUGS (1)
  1. ALLI [Suspect]
     Route: 048
     Dates: start: 20090501

REACTIONS (1)
  - INTESTINAL OBSTRUCTION [None]
